FAERS Safety Report 7729257-6 (Version None)
Quarter: 2011Q3

REPORT INFORMATION
  Report Type: 
  Country: None (occurrence: None)
  Receive Date: 20110906
  Receipt Date: 20110902
  Transmission Date: 20111222
  Serious: No
  Sender: FDA-Public Use
  Company Number: US-PFIZER INC-2011206097

PATIENT
  Sex: Female
  Weight: 81.633 kg

DRUGS (6)
  1. BUPROPION [Concomitant]
     Dosage: 300 MG, 1X/DAY
  2. PANTOPRAZOLE [Concomitant]
     Dosage: 40 MG, 1X/DAY
  3. TRAZODONE [Concomitant]
     Dosage: 200 MG, 1X/DAY
  4. CITALOPRAM [Concomitant]
     Dosage: 40 MG, 2X/DAY
  5. CHANTIX [Suspect]
     Indication: SMOKING CESSATION THERAPY
     Dosage: 0.5 MG, 1X/DAY
     Route: 048
     Dates: start: 20110831
  6. FORMOTEROL FUMARATE/MOMETASONE FUROATE [Concomitant]
     Indication: EMPHYSEMA
     Dosage: 200/5 UG, 2X/DAY

REACTIONS (3)
  - PAIN [None]
  - INFLUENZA LIKE ILLNESS [None]
  - HEADACHE [None]
